FAERS Safety Report 8247582-X (Version None)
Quarter: 2012Q1

REPORT INFORMATION
  Report Type: 
  Country: None (occurrence: None)
  Receive Date: 20120330
  Receipt Date: 20120116
  Transmission Date: 20120608
  Serious: Yes (Hospitalization, Other)
  Sender: FDA-Public Use
  Company Number: CA-ELI_LILLY_AND_COMPANY-CA201111001020

PATIENT
  Sex: Female

DRUGS (5)
  1. AMIODARONE HCL [Concomitant]
  2. HUMULIN N [Suspect]
     Indication: TYPE 2 DIABETES MELLITUS
  3. HUMALOG [Suspect]
     Indication: TYPE 2 DIABETES MELLITUS
     Dosage: 5 U, TID
     Route: 058
     Dates: start: 20110927
  4. SLOW-K [Concomitant]
  5. HUMULIN R [Suspect]

REACTIONS (2)
  - DRUG INEFFECTIVE [None]
  - BLOOD GLUCOSE INCREASED [None]
